FAERS Safety Report 19877606 (Version 2)
Quarter: 2022Q3

REPORT INFORMATION
  Report Type: Spontaneous
  Country: ES (occurrence: ES)
  Receive Date: 20210924
  Receipt Date: 20220722
  Transmission Date: 20221027
  Serious: Yes (Hospitalization, Other)
  Sender: FDA-Public Use
  Company Number: ES-AEMPS-989607

PATIENT
  Age: 80 Year
  Sex: Male

DRUGS (4)
  1. CLOPIDOGREL [Suspect]
     Active Substance: CLOPIDOGREL BISULFATE
     Indication: Product used for unknown indication
     Dosage: 1 TABLET EVERY 24 HOURS - ORAL ROUTE
     Route: 048
     Dates: start: 20201210
  2. CLOMETHIAZOLE [Suspect]
     Active Substance: CLOMETHIAZOLE
     Indication: Product used for unknown indication
     Dosage: DISTRANEURINE 30 CAPSULES (654161) 1 EVERY 8 HOURS
     Route: 048
     Dates: start: 20201210, end: 20210107
  3. PITAVASTATIN [Suspect]
     Active Substance: PITAVASTATIN
     Indication: Product used for unknown indication
     Dosage: 1 TABLET EVERY 24 HOURS - ORAL ROUTE
     Route: 048
     Dates: start: 20201218
  4. QUETIAPINE [Suspect]
     Active Substance: QUETIAPINE
     Indication: Product used for unknown indication
     Dosage: QUETIAPINE 25MG, 60 TABLETS (561650) 1 TABLET EVERY 24 HOURS
     Route: 048
     Dates: start: 20201218

REACTIONS (2)
  - Jaundice [Recovered/Resolved]
  - Drug-induced liver injury [Recovered/Resolved]

NARRATIVE: CASE EVENT DATE: 20210116
